FAERS Safety Report 5151970-8 (Version None)
Quarter: 2006Q4

REPORT INFORMATION
  Report Type: 
  Country: None (occurrence: None)
  Receive Date: 20061109
  Receipt Date: 20061030
  Transmission Date: 20070319
  Serious: Yes (Death)
  Sender: FDA-Public Use
  Company Number: 2006132407

PATIENT
  Age: 58 Year
  Sex: Male
  Weight: 70 kg

DRUGS (1)
  1. SUTENT [Suspect]
     Dosage: 50 MG (1 IN 1 D), ORAL
     Route: 048
     Dates: end: 20061001

REACTIONS (2)
  - DISEASE PROGRESSION [None]
  - RESPIRATORY DISTRESS [None]
